FAERS Safety Report 8776112 (Version 2)
Quarter: 2012Q4

REPORT INFORMATION
  Report Type: 
  Country: JP (occurrence: JP)
  Receive Date: 20120907
  Receipt Date: 20120926
  Transmission Date: 20130627
  Serious: Yes (Other)
  Sender: FDA-Public Use
  Company Number: JP-ELI_LILLY_AND_COMPANY-JP201208003442

PATIENT
  Age: 84 None
  Sex: Female

DRUGS (7)
  1. FORTEO [Suspect]
     Indication: OSTEOPOROSIS
     Dosage: UNK
     Route: 058
     Dates: end: 201207
  2. NU-LOTAN [Concomitant]
     Indication: HYPERTENSION
     Dosage: UNK
     Route: 048
  3. MAGNESIUM OXIDE [Concomitant]
     Indication: CONSTIPATION
     Dosage: UNK
     Route: 048
  4. LAC-B [Concomitant]
     Indication: CONSTIPATION
     Dosage: UNK
     Route: 048
  5. PARIET [Concomitant]
     Indication: GASTROOESOPHAGEAL REFLUX DISEASE
     Dosage: UNK
     Route: 048
  6. SHAKUYAKUKANZOTO [Concomitant]
     Indication: MUSCLE SPASMS
     Dosage: UNK
     Route: 048
  7. NORVASC [Concomitant]
     Indication: BLOOD PRESSURE DECREASED
     Dosage: UNK
     Route: 048
     Dates: start: 201207

REACTIONS (7)
  - Hepatic function abnormal [Recovering/Resolving]
  - Dehydration [Recovering/Resolving]
  - Palpitations [Unknown]
  - Decreased appetite [Unknown]
  - Dizziness [Unknown]
  - Abulia [Unknown]
  - Heat illness [Unknown]
